FAERS Safety Report 6181460-5 (Version None)
Quarter: 2009Q2

REPORT INFORMATION
  Report Type: 
  Country: None (occurrence: None)
  Receive Date: 20090505
  Receipt Date: 20090505
  Transmission Date: 20091009
  Serious: No
  Sender: FDA-Public Use
  Company Number: None

PATIENT
  Age: 46 Year
  Sex: Male
  Weight: 108.6 kg

DRUGS (1)
  1. ROSUVASTATIN CALCIUM [Suspect]
     Dosage: 10MG AT BEDTIME PO
     Route: 048
     Dates: start: 20090302, end: 20090302

REACTIONS (2)
  - MUSCLE SPASMS [None]
  - MYALGIA [None]
